FAERS Safety Report 5775925-5 (Version None)
Quarter: 2008Q2

REPORT INFORMATION
  Report Type: 
  Country: None (occurrence: None)
  Receive Date: 20080617
  Receipt Date: 20080521
  Transmission Date: 20081010
  Serious: Yes (Death, Hospitalization)
  Sender: FDA-Public Use
  Company Number: FR-GENENTECH-261821

PATIENT
  Sex: Male

DRUGS (3)
  1. BEVACIZUMAB [Suspect]
     Indication: NON-SMALL CELL LUNG CANCER
     Dosage: 430 MG, TID
     Route: 042
     Dates: start: 20080218
  2. CISPLATIN [Suspect]
     Indication: NON-SMALL CELL LUNG CANCER
     Dosage: 130 MG, Q3W
     Route: 042
     Dates: start: 20080218
  3. GEMCITABINE [Suspect]
     Indication: NON-SMALL CELL LUNG CANCER
     Dosage: 2000 MG, UNK
     Route: 042
     Dates: start: 20080218

REACTIONS (2)
  - FEBRILE NEUTROPENIA [None]
  - SEPSIS [None]
